FAERS Safety Report 23313539 (Version 2)
Quarter: 2023Q4

REPORT INFORMATION
  Report Type: Spontaneous
  Country: AU (occurrence: AU)
  Receive Date: 20231219
  Receipt Date: 20231222
  Transmission Date: 20240109
  Serious: Yes (Life-Threatening, Hospitalization, Other)
  Sender: FDA-Public Use
  Company Number: NZ-BECTON DICKINSON-AU-BD-23-000450

PATIENT
  Age: 54 Year
  Sex: Male

DRUGS (6)
  1. CHLORAPREP WITH TINT [Suspect]
     Active Substance: CHLORHEXIDINE GLUCONATE\ISOPROPYL ALCOHOL
     Indication: Infection prophylaxis
     Dosage: UNK
     Route: 061
     Dates: start: 20231126, end: 20231126
  2. CHLORAPREP WITH TINT [Suspect]
     Active Substance: CHLORHEXIDINE GLUCONATE\ISOPROPYL ALCOHOL
     Dosage: UNK
     Route: 061
     Dates: start: 20231126, end: 20231126
  3. CEFAZOLIN [Suspect]
     Active Substance: CEFAZOLIN
     Indication: Prophylaxis
     Dosage: UNK, SINGLE
     Route: 042
     Dates: start: 20231126, end: 20231126
  4. REMIFENTANIL [Concomitant]
     Active Substance: REMIFENTANIL
     Indication: Anaesthesia
     Dosage: UNK UNK, SINGLE
     Route: 042
     Dates: start: 20231126, end: 20231126
  5. VECURONIUM [Concomitant]
     Active Substance: VECURONIUM BROMIDE
     Indication: Anaesthesia
     Dosage: UNK UNK, SINGLE
     Route: 042
     Dates: start: 20231126, end: 20231126
  6. PROPOFOL [Concomitant]
     Active Substance: PROPOFOL
     Indication: Anaesthesia
     Dosage: UNK, SINGLE
     Route: 042
     Dates: start: 20231126, end: 20231126

REACTIONS (2)
  - Cardiac arrest [Recovered/Resolved]
  - Anaphylactic reaction [Recovered/Resolved]

NARRATIVE: CASE EVENT DATE: 20231126
